FAERS Safety Report 4756913-4 (Version None)
Quarter: 2005Q3

REPORT INFORMATION
  Report Type: 
  Country: None (occurrence: None)
  Receive Date: 20050830
  Receipt Date: 20050818
  Transmission Date: 20060218
  Serious: Yes (Hospitalization)
  Sender: FDA-Public Use
  Company Number: 2005UW12296

PATIENT
  Age: 50 Year
  Sex: Male

DRUGS (2)
  1. CRESTOR [Suspect]
     Route: 048
  2. ZETIA [Concomitant]

REACTIONS (1)
  - MYOPATHY [None]
